FAERS Safety Report 15808457 (Version 2)
Quarter: 2019Q4

REPORT INFORMATION
  Report Type: Spontaneous
  Country: GB (occurrence: GB)
  Receive Date: 20190110
  Receipt Date: 20191129
  Transmission Date: 20200122
  Serious: Yes (Life-Threatening, Hospitalization, Other)
  Sender: FDA-Public Use
  Company Number: GB-PFIZER INC-2019011086

PATIENT
  Age: 38 Year
  Sex: Female
  Weight: 123 kg

DRUGS (3)
  1. PROPOFOL. [Concomitant]
     Active Substance: PROPOFOL
     Indication: INDUCTION OF ANAESTHESIA
     Dosage: 200 MG, UNK
     Route: 042
  2. ROCURONIUM BROMIDE. [Suspect]
     Active Substance: ROCURONIUM BROMIDE
     Indication: INDUCTION OF ANAESTHESIA
     Dosage: 50 MG, UNK
     Route: 042
     Dates: start: 20181206, end: 20181206
  3. FENTANYL. [Concomitant]
     Active Substance: FENTANYL
     Indication: INDUCTION OF ANAESTHESIA
     Dosage: 100 MG, UNK
     Route: 042

REACTIONS (3)
  - Oxygen saturation decreased [Unknown]
  - Anaphylactic reaction [Recovered/Resolved with Sequelae]
  - Circulatory collapse [Recovered/Resolved with Sequelae]
